FAERS Safety Report 4391983-7 (Version None)
Quarter: 2004Q3

REPORT INFORMATION
  Report Type: 
  Country: None (occurrence: None)
  Receive Date: 20040701
  Receipt Date: 20040621
  Transmission Date: 20050211
  Serious: Yes (Other)
  Sender: FDA-Public Use
  Company Number: 200409082

PATIENT
  Age: 74 Year
  Sex: Female

DRUGS (10)
  1. STREPTASE [Suspect]
     Indication: MYOCARDIAL INFARCTION
     Dosage: 1.5 MIU DAILY IV
     Route: 042
     Dates: start: 20040610, end: 20040610
  2. ASPIRIN [Suspect]
     Indication: MYOCARDIAL INFARCTION
     Dosage: 150 MG DAILY PO
     Route: 048
     Dates: start: 20040608
  3. ENOXAPARIN OR PLACEBO VS. HEPARIN OR PLACEBO [Suspect]
     Indication: MYOCARDIAL INFARCTION
     Dosage: IV
     Route: 042
     Dates: start: 20040610, end: 20040610
  4. ATENOLOL [Concomitant]
  5. ENARENAL [Concomitant]
  6. MORPHINE [Concomitant]
  7. ADRENALIN IN OIL INJ [Concomitant]
  8. METOCLOPRAMIDE [Concomitant]
  9. SODIUM CHLORIDE INJ [Concomitant]
  10. POTASSIUM CHLORIDE [Concomitant]

REACTIONS (4)
  - BRADYCARDIA [None]
  - HAEMATOMA [None]
  - MOUTH HAEMORRHAGE [None]
  - RESPIRATORY ARREST [None]
